FAERS Safety Report 17291885 (Version 1)
Quarter: 2020Q1

REPORT INFORMATION
  Report Type: Spontaneous
  Country: AU (occurrence: AU)
  Receive Date: 20200121
  Receipt Date: 20200121
  Transmission Date: 20200409
  Serious: Yes (Other)
  Sender: FDA-Public Use
  Company Number: AU-BAYER-2019-199118

PATIENT
  Age: 60 Year
  Sex: Female

DRUGS (1)
  1. BETAFERON [Suspect]
     Active Substance: INTERFERON BETA-1B
     Dosage: UNK

REACTIONS (3)
  - Injection site necrosis [Recovering/Resolving]
  - Injection site rash [Recovered/Resolved]
  - Injection site irritation [Recovered/Resolved]
